FAERS Safety Report 7303326-7 (Version None)
Quarter: 2011Q1

REPORT INFORMATION
  Report Type: 
  Country: None (occurrence: None)
  Receive Date: 20110221
  Receipt Date: 20110214
  Transmission Date: 20110831
  Serious: Yes (Other)
  Sender: FDA-Public Use
  Company Number: GB-BRISTOL-MYERS SQUIBB COMPANY-15544695

PATIENT
  Age: 37 Year
  Sex: Female

DRUGS (4)
  1. SEPTRIN [Concomitant]
  2. RALTEGRAVIR [Concomitant]
  3. TRUVADA [Concomitant]
  4. SPRYCEL [Suspect]
     Dosage: INITIALLY:20MG/DAY,19FEB2008:INCREASED TO 40MG,08APR2008: INCREASED TO 50MG;70MG
     Dates: start: 20080212

REACTIONS (3)
  - ELECTROCARDIOGRAM QT PROLONGED [None]
  - PLEURAL EFFUSION [None]
  - HIV TEST POSITIVE [None]
